FAERS Safety Report 9090498 (Version 1)
Quarter: 2013Q1

REPORT INFORMATION
  Report Type: Spontaneous
  Country: DE (occurrence: DE)
  Receive Date: 20130219
  Receipt Date: 20130219
  Transmission Date: 20140127
  Serious: Yes (Other)
  Sender: FDA-Public Use
  Company Number: DE-AMGEN-DEUSP2013010627

PATIENT
  Age: 68 Year
  Sex: Female

DRUGS (3)
  1. ENBREL [Suspect]
     Indication: RHEUMATOID ARTHRITIS
     Dosage: 50 MG, WEEKLY
     Dates: start: 20130203
  2. ENBREL [Suspect]
     Dosage: 50 MG, WEEKLY
     Dates: start: 20070201, end: 20130106
  3. CORTISONE [Concomitant]
     Dosage: 2.5 MG, DAILY

REACTIONS (1)
  - Urethral operation [Unknown]
